FAERS Safety Report 16531423 (Version 1)
Quarter: 2019Q3

REPORT INFORMATION
  Report Type: Spontaneous
  Country: CN (occurrence: CN)
  Receive Date: 20190705
  Receipt Date: 20190705
  Transmission Date: 20191004
  Serious: Yes (Other)
  Sender: FDA-Public Use
  Company Number: CN-PFIZER INC-2019278726

PATIENT
  Age: 55 Year
  Sex: Female

DRUGS (1)
  1. ANZATAX (PACLITAXEL) [Suspect]
     Active Substance: PACLITAXEL
     Indication: OVARIAN CANCER
     Dosage: 10 DF, UNK 10 BOTTLES TOTALLY 300MG (EACH BOTTLE 30MG))

REACTIONS (5)
  - Dyspnoea [Recovering/Resolving]
  - Orthopnoea [Recovering/Resolving]
  - Pallor [Recovering/Resolving]
  - Heart rate increased [Recovering/Resolving]
  - Vision blurred [Recovering/Resolving]
